FAERS Safety Report 18335906 (Version 2)
Quarter: 2020Q4

REPORT INFORMATION
  Report Type: Spontaneous
  Country: US (occurrence: US)
  Receive Date: 20201001
  Receipt Date: 20201202
  Transmission Date: 20210113
  Serious: Yes (Death)
  Sender: FDA-Public Use
  Company Number: US-PFIZER INC-2020378017

PATIENT
  Age: 61 Year
  Sex: Female

DRUGS (2)
  1. IBRANCE [Suspect]
     Active Substance: PALBOCICLIB
     Dosage: 100 MG, CYCLIC [DAILY FOR 21 DAYS]
     Dates: start: 2020, end: 20201122
  2. IBRANCE [Suspect]
     Active Substance: PALBOCICLIB
     Indication: BREAST CANCER FEMALE
     Dosage: 125 MG, CYCLIC (DAILY FOR 21 DAYS IN 28 DAYS)
     Dates: start: 20200826, end: 2020

REACTIONS (2)
  - Death [Fatal]
  - Neutrophil count decreased [Unknown]

NARRATIVE: CASE EVENT DATE: 2020
